FAERS Safety Report 20829724 (Version 1)
Quarter: 2022Q2

REPORT INFORMATION
  Report Type: Spontaneous
  Country: US (occurrence: US)
  Receive Date: 20220513
  Receipt Date: 20220513
  Transmission Date: 20220721
  Serious: No
  Sender: FDA-Public Use
  Company Number: US-PFIZER INC-202101808460

PATIENT
  Age: 64 Year
  Sex: Female
  Weight: 104.33 kg

DRUGS (1)
  1. METHYLPREDNISOLONE [Suspect]
     Active Substance: METHYLPREDNISOLONE
     Dosage: 4 MG

REACTIONS (3)
  - Intentional product misuse [Unknown]
  - Incorrect dose administered [Unknown]
  - Blood calcium decreased [Unknown]
